FAERS Safety Report 6711353-3 (Version None)
Quarter: 2010Q2

REPORT INFORMATION
  Report Type: 
  Country: None (occurrence: None)
  Receive Date: 20100428
  Receipt Date: 20090603
  Transmission Date: 20101027
  Serious: Yes (Life-Threatening, Hospitalization)
  Sender: FDA-Public Use
  Company Number: AE-609-212

PATIENT
  Age: 91 Year
  Sex: Female

DRUGS (5)
  1. LIDODERM [Suspect]
     Dosage: 1 PATCH : ONCE
  2. PAXIL [Concomitant]
  3. HYDROCHLOROTHIAZIDE [Concomitant]
  4. ULTRAM [Concomitant]
  5. LIPITOR [Concomitant]

REACTIONS (1)
  - CARDIAC ARREST [None]
